FAERS Safety Report 26051198 (Version 2)
Quarter: 2025Q4

REPORT INFORMATION
  Report Type: Report from Study
  Country: US (occurrence: US)
  Receive Date: 20251117
  Receipt Date: 20251219
  Transmission Date: 20260117
  Serious: Yes (Hospitalization, Other)
  Sender: ABBVIE
  Company Number: US-ABBVIE-6546014

PATIENT
  Age: 37 Year
  Sex: Female

DRUGS (1)
  1. RINVOQ [Suspect]
     Active Substance: UPADACITINIB
     Indication: Crohn^s disease
     Dosage: FORM STRENGTH:45MG
     Route: 048
     Dates: start: 202509, end: 20251014

REACTIONS (9)
  - Pulmonary thrombosis [Not Recovered/Not Resolved]
  - Pneumonia [Unknown]
  - Crohn^s disease [Unknown]
  - Pulmonary embolism [Unknown]
  - Pulmonary mass [Unknown]
  - COVID-19 [Unknown]
  - Unevaluable event [Unknown]
  - Arthralgia [Unknown]
  - Swelling [Unknown]

NARRATIVE: CASE EVENT DATE: 20250101
